FAERS Safety Report 4469379-9 (Version None)
Quarter: 2004Q4

REPORT INFORMATION
  Report Type: 
  Country: None (occurrence: None)
  Receive Date: 20041008
  Receipt Date: 20040408
  Transmission Date: 20050328
  Serious: No
  Sender: FDA-Public Use
  Company Number: US-BRISTOL-MYERS SQUIBB COMPANY-12555611

PATIENT
  Sex: Male

DRUGS (1)
  1. AVAPRO [Suspect]
     Dosage: SWITCHED FROM 150MG TO 300MG ON 12-MAR-2004
     Route: 048

REACTIONS (1)
  - RASH [None]
